FAERS Safety Report 6214261-X (Version None)
Quarter: 2009Q2

REPORT INFORMATION
  Report Type: 
  Country: None (occurrence: None)
  Receive Date: 20090604
  Receipt Date: 20090526
  Transmission Date: 20091009
  Serious: Yes (Other)
  Sender: FDA-Public Use
  Company Number: PHHY2009JP18692

PATIENT

DRUGS (1)
  1. NEORAL [Suspect]
     Dosage: UNK
     Route: 048

REACTIONS (1)
  - POST TRANSPLANT DISTAL LIMB SYNDROME [None]
